FAERS Safety Report 5777080-4 (Version None)
Quarter: 2008Q2

REPORT INFORMATION
  Report Type: 
  Country: None (occurrence: None)
  Receive Date: 20080617
  Receipt Date: 20080617
  Transmission Date: 20081010
  Serious: Yes (Life-Threatening)
  Sender: FDA-Public Use
  Company Number: None

PATIENT
  Age: 20 Year
  Sex: Male
  Weight: 63 kg

DRUGS (9)
  1. SUCCINYLCHOLINE CHLORIDE [Suspect]
     Indication: ENDOTRACHEAL INTUBATION
     Dosage: 140 MG IV X 1
     Route: 042
     Dates: start: 20080413
  2. PROPOFOL [Concomitant]
  3. MEROPENEM [Concomitant]
  4. VANCOMYCIN [Concomitant]
  5. VORICONAZOLE [Concomitant]
  6. ZANTAC [Concomitant]
  7. PAXIL [Concomitant]
  8. NEURONTIN [Concomitant]
  9. FENTANYL/ATIVAN [Concomitant]

REACTIONS (4)
  - BLOOD POTASSIUM INCREASED [None]
  - CARDIAC ARREST [None]
  - ELECTROMECHANICAL DISSOCIATION [None]
  - VENTRICULAR FIBRILLATION [None]
